FAERS Safety Report 11379857 (Version 1)
Quarter: 2015Q3

REPORT INFORMATION
  Report Type: Spontaneous
  Country: US (occurrence: US)
  Receive Date: 20150814
  Receipt Date: 20150814
  Transmission Date: 20151125
  Serious: No
  Sender: FDA-Public Use
  Company Number: US-B.I. PHARMACEUTICALS,INC./RIDGEFIELD-2015-BI-41951BP

PATIENT
  Age: 67 Year
  Sex: Female
  Weight: 77 kg

DRUGS (16)
  1. FOLIC ACID. [Concomitant]
     Active Substance: FOLIC ACID
     Indication: AUTOIMMUNE DISORDER
     Dosage: 1 MG
     Route: 048
     Dates: start: 2000
  2. LEVOTHYROXINE. [Concomitant]
     Active Substance: LEVOTHYROXINE
     Indication: THYROID DISORDER
     Dosage: 50 MCG
     Route: 048
     Dates: start: 1985
  3. FUROSEMIDE. [Concomitant]
     Active Substance: FUROSEMIDE
     Indication: CARDIAC FAILURE CONGESTIVE
     Dosage: 80 MG
     Route: 048
     Dates: start: 1990
  4. TRAMADOL. [Concomitant]
     Active Substance: TRAMADOL
     Indication: FIBROMYALGIA
     Route: 048
     Dates: start: 2010
  5. SPIROLACTONE [Concomitant]
     Active Substance: SPIRONOLACTONE
     Indication: CARDIAC DISORDER
     Dosage: 25 MG
     Route: 048
     Dates: start: 1990
  6. CRESTOR [Concomitant]
     Active Substance: ROSUVASTATIN CALCIUM
     Indication: BLOOD CHOLESTEROL INCREASED
     Dosage: 20 MG
     Route: 048
     Dates: start: 201505
  7. MINOCYCLINE [Concomitant]
     Active Substance: MINOCYCLINE\MINOCYCLINE HYDROCHLORIDE
     Indication: STOMATITIS
     Route: 048
     Dates: start: 2005
  8. GABAPENTIN. [Concomitant]
     Active Substance: GABAPENTIN
     Indication: TREMOR
     Dosage: 100 MG
     Route: 048
     Dates: start: 201505
  9. OMEPRAZOLE. [Concomitant]
     Active Substance: OMEPRAZOLE
     Indication: GASTROOESOPHAGEAL REFLUX DISEASE
     Dosage: 40 MG
     Route: 048
     Dates: start: 1990
  10. MYCOPHENOLIC ACID. [Concomitant]
     Active Substance: MYCOPHENOLIC ACID
     Indication: SYSTEMIC LUPUS ERYTHEMATOSUS
     Dosage: 1000 MG
     Route: 048
     Dates: start: 2000
  11. FLAXSEED [Concomitant]
     Active Substance: FLAX SEED
     Indication: CARDIAC DISORDER
     Route: 048
     Dates: start: 1990
  12. TRADJENTA [Suspect]
     Active Substance: LINAGLIPTIN
     Indication: DIABETES MELLITUS
     Dosage: 5 MG
     Route: 048
     Dates: start: 20150801
  13. ONDANSETRON [Concomitant]
     Active Substance: ONDANSETRON
     Indication: NAUSEA
     Route: 048
     Dates: start: 201504
  14. GLIMEPIRIDE. [Concomitant]
     Active Substance: GLIMEPIRIDE
     Indication: DIABETES MELLITUS
     Dosage: 8 MG
     Route: 048
     Dates: start: 2014
  15. SINGULAIR [Concomitant]
     Active Substance: MONTELUKAST SODIUM
     Indication: CHRONIC OBSTRUCTIVE PULMONARY DISEASE
     Dosage: 10 MG
     Route: 055
     Dates: start: 2009
  16. METOPROLOL [Concomitant]
     Active Substance: METOPROLOL
     Indication: CARDIAC DISORDER
     Dosage: 100 MG
     Route: 048
     Dates: start: 2004

REACTIONS (1)
  - Drug ineffective [Not Recovered/Not Resolved]

NARRATIVE: CASE EVENT DATE: 20150801
